FAERS Safety Report 24627799 (Version 2)
Quarter: 2024Q4

REPORT INFORMATION
  Report Type: Spontaneous
  Country: US (occurrence: US)
  Receive Date: 20241116
  Receipt Date: 20241217
  Transmission Date: 20250114
  Serious: Yes (Other)
  Sender: MERCK
  Company Number: US-009507513-2411USA003629

PATIENT
  Sex: Male
  Weight: 149.66 kg

DRUGS (10)
  1. JANUVIA [Suspect]
     Active Substance: SITAGLIPTIN PHOSPHATE
     Indication: Type 2 diabetes mellitus
     Dosage: 1 TABLET DAILY
     Route: 048
     Dates: start: 20240613, end: 2024
  2. JANUVIA [Suspect]
     Active Substance: SITAGLIPTIN PHOSPHATE
     Dosage: 1 TABLET DAILY
     Route: 048
     Dates: start: 2024, end: 202409
  3. GLIMEPIRIDE [Suspect]
     Active Substance: GLIMEPIRIDE
     Dosage: UNK
     Dates: end: 202410
  4. GLIMEPIRIDE [Suspect]
     Active Substance: GLIMEPIRIDE
     Dosage: 2 MILLIGRAM, QD (WITH SOME LAPSES)
     Dates: start: 202410
  5. METFORMIN [Suspect]
     Active Substance: METFORMIN HYDROCHLORIDE
     Dosage: UNK
  6. ASPIRIN [Concomitant]
     Active Substance: ASPIRIN
     Indication: Pain
     Dosage: 81 MILLIGRAM, QD
     Route: 048
  7. LEVOTHYROXINE [Concomitant]
     Active Substance: LEVOTHYROXINE
     Dosage: 2 DOSAGE FORM, QD
     Route: 048
  8. NYSTATIN;TRIAMCINOLONE [Concomitant]
     Dosage: UNKNOWN DOSE, BID; STRENGTH: 100000-0.1% UNIT/GM-%
     Route: 061
  9. OXYCODONE AND ACETAMINOPHEN [Concomitant]
     Active Substance: ACETAMINOPHEN\OXYCODONE HYDROCHLORIDE
     Dosage: 1 TABLET EVERY 6 HOURS AS NEEDED PRN
     Route: 048
  10. TAMSULOSIN [Concomitant]
     Active Substance: TAMSULOSIN
     Dosage: 0.4 MILLIGRAM, BID
     Route: 048

REACTIONS (24)
  - Rash pruritic [Recovered/Resolved]
  - Syncope [Unknown]
  - Groin abscess [Unknown]
  - Microalbuminuria [Unknown]
  - Dizziness [Recovered/Resolved]
  - Diarrhoea [Unknown]
  - Abscess [Unknown]
  - Rash [Unknown]
  - Pain in extremity [Unknown]
  - Oedema peripheral [Unknown]
  - Skin ulcer [Unknown]
  - Furuncle [Unknown]
  - Cellulitis [Unknown]
  - Testicular pain [Unknown]
  - Temperature intolerance [Unknown]
  - Tremor [Unknown]
  - Blood pressure abnormal [Unknown]
  - Blood glucose increased [Unknown]
  - Metabolic function test abnormal [Unknown]
  - Glycosylated haemoglobin increased [Unknown]
  - Blood glucose abnormal [Unknown]
  - Skin discolouration [Unknown]
  - Product use issue [Unknown]
  - Product dose omission issue [Unknown]

NARRATIVE: CASE EVENT DATE: 20240101
